FAERS Safety Report 9656809 (Version 3)
Quarter: 2014Q2

REPORT INFORMATION
  Report Type: Spontaneous
  Country: IT (occurrence: None)
  Receive Date: 20131028
  Receipt Date: 20140408
  Transmission Date: 20141212
  Serious: Yes (Hospitalization)
  Sender: FDA-Public Use
  Company Number: AUR-APL-2013-08807

PATIENT
  Age: 81 Year
  Sex: Female

DRUGS (8)
  1. GABAPENTIN [Suspect]
     Indication: ARTHRALGIA
     Dosage: (600 MG,1 D)
     Route: 048
     Dates: start: 20130915, end: 20130921
  2. LEXIL [Suspect]
     Indication: ANXIETY
     Dosage: (16.5 MG,1 D)
     Route: 048
     Dates: start: 20130921
  3. EUTIROX (LEVOTHYROXINE SODIUM) [Concomitant]
  4. PANTORC (PANTOPRAZOLE SODIUM SESQUIHYDRATE) [Concomitant]
  5. DILATREND (CARVEDILOLOL) [Concomitant]
  6. LEVOPRAID (SULPIRIDE) [Concomitant]
  7. ELOPRAM (CITALOPRAM  HYDROBROMIDE) [Concomitant]
  8. CO EFFERALGAN (PANADEINE CO) [Concomitant]

REACTIONS (2)
  - Sopor [None]
  - Bradyphrenia [None]
